FAERS Safety Report 5294619-6 (Version None)
Quarter: 2007Q2

REPORT INFORMATION
  Report Type: 
  Country: None (occurrence: None)
  Receive Date: 20070412
  Receipt Date: 20070403
  Transmission Date: 20071010
  Serious: Yes (Hospitalization)
  Sender: FDA-Public Use
  Company Number: JP-JPN-A200605549

PATIENT
  Age: 66 Year
  Sex: Male

DRUGS (2)
  1. VALTREX [Suspect]
     Indication: HERPES ZOSTER
     Route: 048
     Dates: start: 20061214, end: 20061216
  2. HEMODIALYSIS [Concomitant]
     Dates: start: 20061216

REACTIONS (3)
  - CONFUSIONAL STATE [None]
  - MENTAL DISORDER [None]
  - OVERDOSE [None]
